FAERS Safety Report 6882709-3 (Version None)
Quarter: 2010Q3

REPORT INFORMATION
  Report Type: 
  Country: None (occurrence: None)
  Receive Date: 20100727
  Receipt Date: 20100713
  Transmission Date: 20110219
  Serious: Yes (Hospitalization, Other)
  Sender: FDA-Public Use
  Company Number: 233890J09USA

PATIENT
  Age: 51 Year
  Sex: Female
  Weight: 82 kg

DRUGS (3)
  1. REBIF [Suspect]
     Indication: MULTIPLE SCLEROSIS
     Dosage: 44 MCG, 3 IN 1 WK, SUBCUTANEOUS
     Route: 058
     Dates: start: 20060602
  2. NEURONTIN [Concomitant]
  3. HIGH BLOOD PRESSURE MEDICATION (ANTIHYPERTENSIVES) [Concomitant]

REACTIONS (9)
  - ARTHRALGIA [None]
  - HAEMATOCRIT ABNORMAL [None]
  - INSOMNIA [None]
  - NIGHT SWEATS [None]
  - PAIN [None]
  - PAIN IN EXTREMITY [None]
  - POST PROCEDURAL HAEMORRHAGE [None]
  - SPONDYLOLISTHESIS [None]
  - URINARY INCONTINENCE [None]
